FAERS Safety Report 23380513 (Version 1)
Quarter: 2024Q1

REPORT INFORMATION
  Report Type: Spontaneous
  Country: GB (occurrence: GB)
  Receive Date: 20240109
  Receipt Date: 20240109
  Transmission Date: 20240410
  Serious: No
  Sender: FDA-Public Use
  Company Number: None

PATIENT
  Age: 72 Year
  Sex: Male
  Weight: 78 kg

DRUGS (3)
  1. IBUPROFEN [Suspect]
     Active Substance: IBUPROFEN
     Indication: Limb injury
     Dosage: 200 MILLIGRAM (CAPSULE)
     Route: 065
     Dates: start: 20231006
  2. ACETAMINOPHEN [Suspect]
     Active Substance: ACETAMINOPHEN
     Indication: Limb injury
     Dosage: 200 MILLIGRAM (CAPSULE)
     Route: 065
     Dates: start: 20231006
  3. COCODAMOL [Concomitant]
     Active Substance: ACETAMINOPHEN\CODEINE PHOSPHATE
     Indication: Analgesic therapy
     Dosage: UNK
     Route: 065

REACTIONS (1)
  - Hyperaesthesia teeth [Not Recovered/Not Resolved]
